FAERS Safety Report 8798470 (Version 2)
Quarter: 2015Q3

REPORT INFORMATION
  Report Type: Report from Study
  Country: US (occurrence: US)
  Receive Date: 20120920
  Receipt Date: 20150731
  Transmission Date: 20151125
  Serious: Yes (Death)
  Sender: FDA-Public Use
  Company Number: US-ROCHE-1098347

PATIENT
  Sex: Female

DRUGS (9)
  1. ATENOLOL. [Concomitant]
     Active Substance: ATENOLOL
  2. DIGOXIN. [Concomitant]
     Active Substance: DIGOXIN
  3. VITAMIN E [Concomitant]
     Active Substance: .ALPHA.-TOCOPHEROL
  4. AVASTIN [Suspect]
     Active Substance: BEVACIZUMAB
     Indication: RENAL CANCER
     Dosage: 658 MG / 100CC IN SALINE
     Route: 042
     Dates: start: 200506
  5. NEXAVAR [Suspect]
     Active Substance: SORAFENIB
     Indication: PRODUCT USED FOR UNKNOWN INDICATION
     Route: 065
  6. FOLIC ACID. [Concomitant]
     Active Substance: FOLIC ACID
  7. LASIX [Concomitant]
     Active Substance: FUROSEMIDE
  8. VITAMIN C [Concomitant]
     Active Substance: ASCORBIC ACID
  9. COUMADIN [Concomitant]
     Active Substance: WARFARIN SODIUM

REACTIONS (9)
  - Emotional distress [Unknown]
  - Contusion [Unknown]
  - Death [Fatal]
  - Off label use [Unknown]
  - Diarrhoea [Recovered/Resolved]
  - Chest wall mass [Unknown]
  - Fatigue [Recovered/Resolved]
  - Dyspnoea [Recovering/Resolving]
  - Pulmonary mass [Unknown]
